FAERS Safety Report 8811590 (Version 1)
Quarter: 2012Q4

REPORT INFORMATION
  Report Type: 
  Country: US (occurrence: US)
  Receive Date: 20120927
  Receipt Date: 20120927
  Transmission Date: 20130627
  Serious: Yes (Hospitalization)
  Sender: FDA-Public Use
  Company Number: US-INCYTE CORPORATION-2012IN001813

PATIENT
  Age: 74 None
  Sex: Male

DRUGS (2)
  1. JAKAFI [Suspect]
     Indication: MYELOFIBROSIS
     Dosage: 20 mg, bid
     Route: 048
     Dates: start: 20120808
  2. ANTIBIOTICS [Concomitant]

REACTIONS (3)
  - Haematoma [Unknown]
  - Dizziness [Unknown]
  - Fatigue [Unknown]
